FAERS Safety Report 9995167 (Version 1)
Quarter: 2014Q1

REPORT INFORMATION
  Report Type: Spontaneous
  Country: US (occurrence: None)
  Receive Date: 20140214
  Receipt Date: 20140214
  Transmission Date: 20141002
  Serious: Yes (Other)
  Sender: FDA-Public Use
  Company Number: US-014102

PATIENT
  Age: 58 Year
  Sex: Female

DRUGS (1)
  1. PICO-SALAX (NOT SPECIFIED) [Suspect]
     Indication: BOWEL PREPARATION
     Route: 048
     Dates: start: 20131215, end: 20131215

REACTIONS (1)
  - Drug ineffective [None]
